FAERS Safety Report 5286598-2 (Version None)
Quarter: 2007Q2

REPORT INFORMATION
  Report Type: 
  Country: None (occurrence: None)
  Receive Date: 20070404
  Receipt Date: 20070329
  Transmission Date: 20071010
  Serious: Yes (Disabling, Other)
  Sender: FDA-Public Use
  Company Number: US-GLAXOSMITHKLINE-A0641489A

PATIENT
  Age: 60 Year
  Sex: Male

DRUGS (5)
  1. COREG [Suspect]
     Indication: HYPERTENSION
     Dosage: 12.5MG TWICE PER DAY
     Route: 048
     Dates: start: 20070201, end: 20070226
  2. TOPROL-XL [Suspect]
     Indication: HYPERTENSION
     Dates: start: 20070227
  3. LISINOPRIL [Concomitant]
  4. VITAMIN [Concomitant]
  5. ASPIRIN [Concomitant]

REACTIONS (6)
  - ANXIETY [None]
  - BLOOD SODIUM DECREASED [None]
  - FATIGUE [None]
  - INSOMNIA [None]
  - OEDEMA PERIPHERAL [None]
  - THINKING ABNORMAL [None]
